FAERS Safety Report 9782492 (Version 1)
Quarter: 2013Q4

REPORT INFORMATION
  Report Type: Spontaneous
  Country: US (occurrence: None)
  Receive Date: 20131223
  Receipt Date: 20131223
  Transmission Date: 20140711
  Serious: Yes (Hospitalization)
  Sender: FDA-Public Use
  Company Number: None

PATIENT
  Age: 62 Year
  Sex: Male
  Weight: 96 kg

DRUGS (4)
  1. PIPERACILLIN/TAZOBACTAM [Suspect]
     Indication: CELLULITIS
     Dosage: OTHER
     Route: 042
     Dates: start: 20130929, end: 20131001
  2. PIPERACILLIN/TAZOBACTAM [Suspect]
     Indication: GASTROINTESTINAL NECROSIS
     Dosage: OTHER
     Route: 042
     Dates: start: 20130929, end: 20131001
  3. AZTREONAM [Suspect]
     Indication: CELLULITIS
     Dosage: OTHER
     Route: 042
     Dates: start: 20131001, end: 20131003
  4. AZTREONAM [Suspect]
     Indication: GASTROINTESTINAL NECROSIS
     Dosage: OTHER
     Route: 042
     Dates: start: 20131001, end: 20131003

REACTIONS (4)
  - Renal failure acute [None]
  - Tubulointerstitial nephritis [None]
  - Renal tubular necrosis [None]
  - Hypotension [None]
